FAERS Safety Report 25947911 (Version 1)
Quarter: 2025Q4

REPORT INFORMATION
  Report Type: Spontaneous
  Country: US (occurrence: US)
  Receive Date: 20251022
  Receipt Date: 20251022
  Transmission Date: 20260117
  Serious: Yes (Hospitalization)
  Sender: FRESENIUS MEDICAL CARE
  Company Number: US-FMCRTG-FMC-2509-001494

PATIENT
  Age: 43 Year
  Sex: Male

DRUGS (2)
  1. DELFLEX WITH DEXTROSE 1.5% LOW MAGNESIUM LOW CALCIUM [Suspect]
     Active Substance: CALCIUM CHLORIDE\DEXTROSE\MAGNESIUM CHLORIDE\SODIUM CHLORIDE\SODIUM LACTATE
     Indication: End stage renal disease
     Dosage: FILLS = 5; FIRST FILL VOLUME = 2000ML; TIDAL FILL VOLUME = 1500ML; TIDAL DRAIN VOLUME = 1500ML; LAST
     Route: 033
  2. DELFLEX WITH DEXTROSE 2.5% LOW MAGNESIUM LOW CALCIUM [Suspect]
     Active Substance: CALCIUM CHLORIDE\DEXTROSE\MAGNESIUM CHLORIDE\SODIUM CHLORIDE\SODIUM LACTATE
     Indication: End stage renal disease
     Dosage: FILLS = 5; FIRST FILL VOLUME = 2000ML; TIDAL FILL VOLUME = 1500ML; TIDAL DRAIN VOLUME = 1500ML; LAST
     Route: 033

REACTIONS (1)
  - Hypervolaemia [Recovering/Resolving]

NARRATIVE: CASE EVENT DATE: 20250906
